FAERS Safety Report 17099492 (Version 4)
Quarter: 2020Q1

REPORT INFORMATION
  Report Type: Spontaneous
  Country: US (occurrence: US)
  Receive Date: 20191202
  Receipt Date: 20200313
  Transmission Date: 20200409
  Serious: No
  Sender: FDA-Public Use
  Company Number: US-PFIZER INC-2019516593

PATIENT
  Age: 65 Year
  Sex: Male
  Weight: 80.29 kg

DRUGS (11)
  1. VYNDAMAX [Suspect]
     Active Substance: TAFAMIDIS
     Dosage: 61 MG, 1X/DAY
     Dates: start: 20191121
  2. DILTIAZEM. [Concomitant]
     Active Substance: DILTIAZEM
     Dosage: UNK
     Dates: start: 20191110
  3. LASIX [Concomitant]
     Active Substance: FUROSEMIDE
     Dosage: 40 MG, UNK
     Dates: start: 20191010
  4. TIKOSYN [Concomitant]
     Active Substance: DOFETILIDE
     Dosage: 250 MG, UNK
     Dates: start: 20191025
  5. VYNDAMAX [Suspect]
     Active Substance: TAFAMIDIS
     Indication: CARDIAC AMYLOIDOSIS
     Dosage: 61 MG, 1X/DAY
     Dates: start: 20191110
  6. VYNDAMAX [Suspect]
     Active Substance: TAFAMIDIS
     Dosage: 61 MG, 1X/DAY
     Dates: start: 20191115
  7. TIKOSYN [Concomitant]
     Active Substance: DOFETILIDE
     Indication: SINUS RHYTHM
     Dosage: 250 MG, 2X/DAY
     Dates: start: 20191003
  8. TIKOSYN [Concomitant]
     Active Substance: DOFETILIDE
     Dosage: UNK
     Dates: start: 20191110
  9. DILTIAZEM. [Concomitant]
     Active Substance: DILTIAZEM
     Dosage: 180 MG, UNK
     Dates: start: 20191010
  10. LASIX [Concomitant]
     Active Substance: FUROSEMIDE
     Dosage: UNK
     Dates: start: 20191110
  11. TIKOSYN [Concomitant]
     Active Substance: DOFETILIDE
     Dosage: UNK
     Dates: start: 20191010

REACTIONS (3)
  - Therapeutic response unexpected [Recovered/Resolved]
  - Energy increased [Recovered/Resolved]
  - Pre-existing condition improved [Recovered/Resolved]

NARRATIVE: CASE EVENT DATE: 20191110
